FAERS Safety Report 7765546 (Version 16)
Quarter: 2025Q3

REPORT INFORMATION
  Report Type: Spontaneous
  Country: GB (occurrence: GB)
  Receive Date: 20110119
  Receipt Date: 20250813
  Transmission Date: 20251021
  Serious: Yes (Hospitalization, Other)
  Sender: TEVA
  Company Number: GB-PFIZER INC-2010145516

PATIENT
  Age: 60 Year
  Sex: Female

DRUGS (14)
  1. SIMVASTATIN [Suspect]
     Active Substance: SIMVASTATIN
     Indication: Product used for unknown indication
     Dosage: 20 MG,UNK, QAM,1X/DAY, AT NIGHT
     Route: 065
  2. ASPIRIN [Suspect]
     Active Substance: ASPIRIN
     Indication: Product used for unknown indication
     Route: 065
  3. LYRICA [Suspect]
     Active Substance: PREGABALIN
     Indication: Generalised anxiety disorder
     Route: 065
  4. LYRICA [Suspect]
     Active Substance: PREGABALIN
     Indication: Generalised anxiety disorder
     Dosage: 100 MG, 3 TIMES A DAY
     Route: 065
     Dates: end: 20100913
  5. LYRICA [Suspect]
     Active Substance: PREGABALIN
     Indication: Generalised anxiety disorder
     Dosage: 50 MG, 3 TIMES A DAY,
     Route: 065
     Dates: start: 201005
  6. LYRICA [Suspect]
     Active Substance: PREGABALIN
     Indication: Generalised anxiety disorder
     Dosage: 75 MG, 3 TIMES A DAY
     Route: 065
     Dates: start: 201007, end: 201008
  7. DOSULEPIN HYDROCHLORIDE [Suspect]
     Active Substance: DOTHIEPIN HYDROCHLORIDE
     Indication: Depression
     Route: 065
  8. PROMETHAZINE [Suspect]
     Active Substance: PROMETHAZINE HYDROCHLORIDE
     Indication: Sleep disorder
     Route: 065
  9. CITALOPRAM [Suspect]
     Active Substance: CITALOPRAM
     Indication: Product used for unknown indication
     Route: 065
  10. DIAZEPAM [Suspect]
     Active Substance: DIAZEPAM
     Indication: Depression
     Route: 065
  11. SERTRALINE [Suspect]
     Active Substance: SERTRALINE HYDROCHLORIDE
     Indication: Product used for unknown indication
     Route: 065
  12. SERTRALINE [Suspect]
     Active Substance: SERTRALINE HYDROCHLORIDE
     Indication: Product used for unknown indication
     Dosage: UNK, IN THE MORNING
     Route: 065
  13. ATENOLOL [Suspect]
     Active Substance: ATENOLOL
     Indication: Product used for unknown indication
     Route: 065
  14. ZOPICLONE [Suspect]
     Active Substance: ZOPICLONE
     Indication: Sleep disorder
     Dosage: UNK, AT NIGHT
     Route: 065

REACTIONS (27)
  - Aggression [Unknown]
  - Overdose [Unknown]
  - Confusional state [Unknown]
  - Depression [Recovering/Resolving]
  - Diarrhoea [Unknown]
  - Oral discomfort [Unknown]
  - Malaise [Unknown]
  - Illness anxiety disorder [Unknown]
  - Insomnia [Unknown]
  - Lethargy [Unknown]
  - Myalgia [Not Recovered/Not Resolved]
  - Muscle twitching [Not Recovered/Not Resolved]
  - Anxiety [Recovering/Resolving]
  - Panic attack [Unknown]
  - Tremor [Unknown]
  - Suicidal ideation [Unknown]
  - Hyperhidrosis [Unknown]
  - Urinary tract infection [Unknown]
  - Vomiting [Unknown]
  - Weight decreased [Unknown]
  - Dizziness [Unknown]
  - Syncope [Unknown]
  - Muscle atrophy [Not Recovered/Not Resolved]
  - Pain [Unknown]
  - Nausea [Recovering/Resolving]
  - Anaemia [Unknown]
  - Decreased appetite [Recovering/Resolving]

NARRATIVE: CASE EVENT DATE: 20100101
